FAERS Safety Report 5771902-9 (Version None)
Quarter: 2008Q2

REPORT INFORMATION
  Report Type: 
  Country: None (occurrence: None)
  Receive Date: 20080613
  Receipt Date: 20080611
  Transmission Date: 20081010
  Serious: Yes (Other)
  Sender: FDA-Public Use
  Company Number: D0057667A

PATIENT
  Sex: Male

DRUGS (3)
  1. ELONTRIL [Suspect]
     Indication: DEPRESSION
     Dosage: 150MG PER DAY
     Route: 048
     Dates: start: 20080501
  2. PAROXETINE HCL [Concomitant]
     Indication: DEPRESSION
     Route: 065
  3. LEVOTHYROXINE SODIUM [Concomitant]
     Route: 048

REACTIONS (8)
  - ABNORMAL DREAMS [None]
  - AGGRESSION [None]
  - ANOREXIA [None]
  - APPETITE DISORDER [None]
  - HANGOVER [None]
  - HEADACHE [None]
  - INSOMNIA [None]
  - SLEEP DISORDER [None]
